FAERS Safety Report 4355352-8 (Version None)
Quarter: 2004Q2

REPORT INFORMATION
  Report Type: 
  Country: None (occurrence: None)
  Receive Date: 20040504
  Receipt Date: 20040415
  Transmission Date: 20050107
  Serious: Yes (Hospitalization)
  Sender: FDA-Public Use
  Company Number: MEDI-0001535

PATIENT
  Age: 3 Month
  Sex: Female

DRUGS (6)
  1. SYNAGIS [Suspect]
     Indication: ANTIVIRAL PROPHYLAXIS
     Dosage: SEE IMAGE
     Route: 030
     Dates: start: 20021225, end: 20030326
  2. SYNAGIS [Suspect]
     Indication: ANTIVIRAL PROPHYLAXIS
     Dosage: SEE IMAGE
     Route: 030
     Dates: start: 20021225
  3. SYNAGIS [Suspect]
     Indication: ANTIVIRAL PROPHYLAXIS
     Dosage: SEE IMAGE
     Route: 030
     Dates: start: 20030129
  4. SYNAGIS [Suspect]
     Indication: ANTIVIRAL PROPHYLAXIS
     Dosage: SEE IMAGE
     Route: 030
     Dates: start: 20030226
  5. EPOETIN ALFA (EPOETIN ALFA) [Concomitant]
  6. ALFACALCIDOL (ALFACALCIDOL) [Concomitant]

REACTIONS (2)
  - MENINGITIS BACTERIAL [None]
  - UPPER RESPIRATORY TRACT INFLAMMATION [None]
